FAERS Safety Report 4399808-0 (Version None)
Quarter: 2004Q3

REPORT INFORMATION
  Report Type: 
  Country: None (occurrence: None)
  Receive Date: 20040714
  Receipt Date: 20040701
  Transmission Date: 20050211
  Serious: Yes (Death, Hospitalization)
  Sender: FDA-Public Use
  Company Number: 04P-144-0265621-00

PATIENT
  Age: 43 Year
  Sex: Female

DRUGS (6)
  1. KALETRA [Suspect]
     Indication: HIV INFECTION
     Dosage: 3 TABLET, 1 IN 12 HR, PER ORAL
     Route: 048
     Dates: start: 20030801, end: 20040118
  2. STAVUDINE [Concomitant]
  3. VIREAD [Concomitant]
  4. SEPTRIM FORTE [Concomitant]
  5. LORAZEPAM [Concomitant]
  6. ZIPREXIA [Concomitant]

REACTIONS (11)
  - ABDOMINAL INFECTION [None]
  - ALANINE AMINOTRANSFERASE ABNORMAL [None]
  - ASPARTATE AMINOTRANSFERASE ABNORMAL [None]
  - BILE DUCT STONE [None]
  - BLOOD ALKALINE PHOSPHATASE ABNORMAL [None]
  - CARDIAC ARREST [None]
  - COLITIS [None]
  - GAMMA-GLUTAMYLTRANSFERASE ABNORMAL [None]
  - HEPATOMEGALY [None]
  - METABOLIC ACIDOSIS [None]
  - SEPTIC SHOCK [None]
